FAERS Safety Report 5609451-0 (Version None)
Quarter: 2008Q1

REPORT INFORMATION
  Report Type: 
  Country: None (occurrence: None)
  Receive Date: 20080131
  Receipt Date: 20080117
  Transmission Date: 20080703
  Serious: Yes (Hospitalization, Other)
  Sender: FDA-Public Use
  Company Number: US-AMGEN-QUU261179

PATIENT
  Sex: Female

DRUGS (13)
  1. ARANESP [Suspect]
     Indication: MYELODYSPLASTIC SYNDROME
     Route: 058
  2. ACCOLATE [Concomitant]
  3. RANITIDINE [Concomitant]
  4. CHLORTHALIDONE [Concomitant]
  5. NIFEDIPINE [Concomitant]
  6. SLOW-FE [Concomitant]
  7. ADVAIR DISKUS 100/50 [Concomitant]
     Route: 055
  8. ATROVENT [Concomitant]
     Route: 055
  9. DIOVAN [Concomitant]
  10. ASPIRIN [Concomitant]
  11. VITAMIN A/VITAMIN C/VITAMIN E/ZINC/SELENIUM/COPPER/LUTEIN [Concomitant]
  12. GLUCOSAMINE [Concomitant]
  13. CITRACAL [Concomitant]

REACTIONS (6)
  - FALL [None]
  - FATIGUE [None]
  - HAEMOGLOBIN DECREASED [None]
  - HAEMORRHAGE [None]
  - MACULAR DEGENERATION [None]
  - RIB FRACTURE [None]
